FAERS Safety Report 8417774 (Version 7)
Quarter: 2012Q4

REPORT INFORMATION
  Report Type: 
  Country: JP (occurrence: JP)
  Receive Date: 20120221
  Receipt Date: 20121113
  Transmission Date: 20130627
  Serious: Yes (Hospitalization, Other)
  Sender: FDA-Public Use
  Company Number: JP-PFIZER INC-2012042630

PATIENT

DRUGS (4)
  1. DALACIN [Suspect]
  2. ZOSYN [Interacting]
  3. FOSFLUCONAZOLE [Suspect]
     Indication: FUNGAL INFECTION
  4. MEROPEN [Suspect]

REACTIONS (2)
  - Interstitial lung disease [Not Recovered/Not Resolved]
  - Hepatic function abnormal [Unknown]
